FAERS Safety Report 7582502-2 (Version None)
Quarter: 2011Q2

REPORT INFORMATION
  Report Type: 
  Country: None (occurrence: None)
  Receive Date: 20110630
  Receipt Date: 20110624
  Transmission Date: 20111010
  Serious: No
  Sender: FDA-Public Use
  Company Number: US-PFIZER INC-2011142586

PATIENT
  Age: 34 Year
  Sex: Female

DRUGS (1)
  1. SERTRALINE HYDROCHLORIDE [Suspect]
     Indication: PREMENSTRUAL SYNDROME
     Dosage: 100 MG, UNK

REACTIONS (1)
  - DRUG INEFFECTIVE [None]
